FAERS Safety Report 15928835 (Version 4)
Quarter: 2019Q4

REPORT INFORMATION
  Report Type: Spontaneous
  Country: US (occurrence: US)
  Receive Date: 20190206
  Receipt Date: 20191004
  Transmission Date: 20200122
  Serious: Yes (Death, Other)
  Sender: FDA-Public Use
  Company Number: US-ASTRAZENECA-2018SF34805

PATIENT
  Age: 8762 Day
  Sex: Female

DRUGS (48)
  1. PREVACID [Suspect]
     Active Substance: LANSOPRAZOLE
     Indication: GASTROOESOPHAGEAL REFLUX DISEASE
     Route: 065
     Dates: start: 20040413, end: 20040722
  2. LISINOPRIL. [Concomitant]
     Active Substance: LISINOPRIL
  3. BENADRYL [Concomitant]
     Active Substance: DIPHENHYDRAMINE HYDROCHLORIDE
  4. LANTUS [Concomitant]
     Active Substance: INSULIN GLARGINE
  5. NIFEDIPINE. [Concomitant]
     Active Substance: NIFEDIPINE
  6. HYDROXYZINE [Concomitant]
     Active Substance: HYDROXYZINE HYDROCHLORIDE
  7. CETIRIZINE [Concomitant]
     Active Substance: CETIRIZINE HYDROCHLORIDE
  8. NEXIUM [Suspect]
     Active Substance: ESOMEPRAZOLE MAGNESIUM
     Indication: GASTROOESOPHAGEAL REFLUX DISEASE
     Route: 048
     Dates: start: 2004, end: 2006
  9. LASIX [Concomitant]
     Active Substance: FUROSEMIDE
  10. ZOCOR [Concomitant]
     Active Substance: SIMVASTATIN
  11. ZETIA [Concomitant]
     Active Substance: EZETIMIBE
  12. EFFEXOR [Concomitant]
     Active Substance: VENLAFAXINE HYDROCHLORIDE
  13. MORPHINE [Concomitant]
     Active Substance: MORPHINE
  14. METOCLOPRAMIDE. [Concomitant]
     Active Substance: METOCLOPRAMIDE
  15. ALBUTEROL. [Concomitant]
     Active Substance: ALBUTEROL
  16. NEXIUM [Suspect]
     Active Substance: ESOMEPRAZOLE MAGNESIUM
     Indication: GASTROOESOPHAGEAL REFLUX DISEASE
     Route: 048
     Dates: start: 20040702, end: 20060413
  17. NEXIUM [Suspect]
     Active Substance: ESOMEPRAZOLE MAGNESIUM
     Indication: GASTROOESOPHAGEAL REFLUX DISEASE
     Route: 048
     Dates: start: 20040820
  18. BIOTIN [Concomitant]
     Active Substance: BIOTIN
  19. BENZONATATE. [Concomitant]
     Active Substance: BENZONATATE
  20. PREVACID [Suspect]
     Active Substance: LANSOPRAZOLE
     Indication: GASTROOESOPHAGEAL REFLUX DISEASE
     Route: 065
     Dates: start: 2004, end: 2006
  21. NEURONTIN [Concomitant]
     Active Substance: GABAPENTIN
  22. ASPIRIN. [Concomitant]
     Active Substance: ASPIRIN
  23. METOLAZONE. [Concomitant]
     Active Substance: METOLAZONE
  24. PROMETHAZINE [Concomitant]
     Active Substance: PROMETHAZINE HYDROCHLORIDE
  25. IPRATROPIUM [Concomitant]
     Active Substance: IPRATROPIUM
  26. NOVOLOG [Concomitant]
     Active Substance: INSULIN ASPART
  27. ACYCLOVIR. [Concomitant]
     Active Substance: ACYCLOVIR
  28. PROTONIX [Suspect]
     Active Substance: PANTOPRAZOLE SODIUM
     Indication: GASTROOESOPHAGEAL REFLUX DISEASE
     Route: 065
     Dates: start: 2004, end: 2006
  29. PROTONIX [Suspect]
     Active Substance: PANTOPRAZOLE SODIUM
     Indication: GASTROOESOPHAGEAL REFLUX DISEASE
     Route: 065
     Dates: start: 20050221, end: 20060113
  30. CLONIDINE. [Concomitant]
     Active Substance: CLONIDINE
  31. MAGNESIUM HYDROXIDE. [Concomitant]
     Active Substance: MAGNESIUM HYDROXIDE
  32. ACETAMINOPHEN-CODEINE [Concomitant]
     Active Substance: ACETAMINOPHEN\CODEINE PHOSPHATE
  33. ESCITALOPRAM [Concomitant]
     Active Substance: ESCITALOPRAM OXALATE
  34. PROCHLORPERAZINE. [Concomitant]
     Active Substance: PROCHLORPERAZINE
  35. TRAZODONE [Concomitant]
     Active Substance: TRAZODONE HYDROCHLORIDE
  36. METOPROLOL. [Concomitant]
     Active Substance: METOPROLOL
  37. COLACE [Concomitant]
     Active Substance: DOCUSATE SODIUM
  38. ARIPIPRAZOLE. [Concomitant]
     Active Substance: ARIPIPRAZOLE
  39. PREVACID [Suspect]
     Active Substance: LANSOPRAZOLE
     Indication: GASTROOESOPHAGEAL REFLUX DISEASE
     Route: 065
     Dates: start: 20040413
  40. PROTONIX [Suspect]
     Active Substance: PANTOPRAZOLE SODIUM
     Indication: GASTROOESOPHAGEAL REFLUX DISEASE
     Route: 065
     Dates: start: 20050221
  41. LEXAPRO [Concomitant]
     Active Substance: ESCITALOPRAM OXALATE
  42. NITROGLYCERIN. [Concomitant]
     Active Substance: NITROGLYCERIN
  43. DIPHENHYDRAMINE. [Concomitant]
     Active Substance: DIPHENHYDRAMINE
  44. WARFARIN [Concomitant]
     Active Substance: WARFARIN
  45. FLUTICASONE-SALMETEROL [Concomitant]
  46. TOPAMAX [Concomitant]
     Active Substance: TOPIRAMATE
  47. ZYRTEC [Concomitant]
     Active Substance: CETIRIZINE HYDROCHLORIDE
  48. ATIVAN [Concomitant]
     Active Substance: LORAZEPAM

REACTIONS (7)
  - Type 1 diabetes mellitus [Fatal]
  - Renal disorder [Fatal]
  - Renal failure [Recovered/Resolved]
  - Acute kidney injury [Unknown]
  - Nephrogenic anaemia [Unknown]
  - End stage renal disease [Fatal]
  - Chronic kidney disease [Unknown]

NARRATIVE: CASE EVENT DATE: 20040419
